FAERS Safety Report 12369378 (Version 1)
Quarter: 2016Q2

REPORT INFORMATION
  Report Type: Spontaneous
  Country: US (occurrence: US)
  Receive Date: 20160513
  Receipt Date: 20160513
  Transmission Date: 20160815
  Serious: No
  Sender: FDA-Public Use
  Company Number: US-PERRIGO-16US001455

PATIENT
  Age: 6 Year
  Sex: Female
  Weight: 20.41 kg

DRUGS (3)
  1. FAMOTIDINE. [Suspect]
     Active Substance: FAMOTIDINE
     Indication: ABDOMINAL DISCOMFORT
     Dosage: 10 MG, BID
     Route: 048
     Dates: start: 20160201, end: 20160208
  2. PROBIOTIC                          /06395501/ [Concomitant]
     Active Substance: BIFIDOBACTERIUM ANIMALIS SUBSP. LACTIS
     Indication: SUPPLEMENTATION THERAPY
     Dosage: UNK
     Route: 065
  3. AZITHROMYCIN ANHYDROUS. [Suspect]
     Active Substance: AZITHROMYCIN ANHYDROUS
     Indication: ABDOMINAL DISCOMFORT
     Dosage: UNKNOWN, UNKNOWN
     Route: 048
     Dates: start: 20160201

REACTIONS (9)
  - Headache [Recovered/Resolved]
  - Abasia [Recovered/Resolved]
  - Pain in extremity [Recovered/Resolved]
  - Abdominal pain upper [Recovered/Resolved]
  - Back pain [Recovered/Resolved]
  - Off label use [Recovered/Resolved]
  - Oropharyngeal pain [Recovered/Resolved]
  - Sensory disturbance [Not Recovered/Not Resolved]
  - Drug administered to patient of inappropriate age [Recovered/Resolved]

NARRATIVE: CASE EVENT DATE: 20160201
